FAERS Safety Report 14404237 (Version 2)
Quarter: 2020Q3

REPORT INFORMATION
  Report Type: Spontaneous
  Country: FR (occurrence: FR)
  Receive Date: 20180117
  Receipt Date: 20200910
  Transmission Date: 20201102
  Serious: Yes (Life-Threatening, Hospitalization, Disabling)
  Sender: FDA-Public Use
  Company Number: FR-009507513-1801FRA005127

PATIENT
  Age: 78 Year
  Sex: Male
  Weight: 83 kg

DRUGS (4)
  1. SOTALOL HYDROCHLORIDE. [Concomitant]
     Active Substance: SOTALOL HYDROCHLORIDE
     Dosage: 80 MG, QD
  2. DUOTRAV [Concomitant]
     Active Substance: TIMOLOL MALEATE\TRAVOPROST
     Dosage: 1 DROP (1/12 MILLILITER), QD
     Route: 031
  3. KEYTRUDA [Suspect]
     Active Substance: PEMBROLIZUMAB
     Indication: MALIGNANT MELANOMA
     Dosage: CYCLICAL
     Route: 042
     Dates: start: 20170807
  4. ASPIRIN PROTECT [Concomitant]
     Active Substance: ASPIRIN
     Dosage: 100 MILLIGRAM

REACTIONS (5)
  - Nausea [Recovered/Resolved]
  - Hepatocellular injury [Recovered/Resolved]
  - Acute respiratory distress syndrome [Recovered/Resolved with Sequelae]
  - Vomiting [Recovered/Resolved]
  - Immune-mediated myositis [Recovered/Resolved with Sequelae]

NARRATIVE: CASE EVENT DATE: 20170825
